FAERS Safety Report 7374498-3 (Version None)
Quarter: 2011Q1

REPORT INFORMATION
  Report Type: 
  Country: None (occurrence: None)
  Receive Date: 20110325
  Receipt Date: 20110124
  Transmission Date: 20110831
  Serious: No
  Sender: FDA-Public Use
  Company Number: US-MYLANLABS-2011S1001666

PATIENT
  Age: 43 Year
  Sex: Male

DRUGS (2)
  1. FENTANYL-100 [Suspect]
     Indication: BACK PAIN
     Dosage: CHANGED Q72H
     Route: 062
     Dates: start: 20100101, end: 20110119
  2. HYDROCODONE BITARTRATE [Concomitant]
     Indication: BACK PAIN
     Route: 048

REACTIONS (5)
  - FEELING HOT [None]
  - DRUG EFFECT INCREASED [None]
  - HYPOAESTHESIA [None]
  - RESTLESSNESS [None]
  - HYPERHIDROSIS [None]
